FAERS Safety Report 8917678 (Version 1)
Quarter: 2012Q4

REPORT INFORMATION
  Report Type: 
  Country: ES (occurrence: ES)
  Receive Date: 20121119
  Receipt Date: 20121119
  Transmission Date: 20130627
  Serious: Yes (Other)
  Sender: FDA-Public Use
  Company Number: ES-MERCK-1211ESP005159

PATIENT
  Sex: Female

DRUGS (1)
  1. SYCREST [Suspect]
     Indication: BIPOLAR DISORDER
     Dosage: UNK
     Route: 060

REACTIONS (2)
  - Abortion induced [Unknown]
  - Exposure during pregnancy [Recovered/Resolved]
